FAERS Safety Report 21705503 (Version 3)
Quarter: 2023Q1

REPORT INFORMATION
  Report Type: Spontaneous
  Country: US (occurrence: US)
  Receive Date: 20221209
  Receipt Date: 20230111
  Transmission Date: 20230418
  Serious: No
  Sender: FDA-Public Use
  Company Number: US-SANOFI-01391151

PATIENT
  Sex: Female

DRUGS (1)
  1. ENOXAPARIN SODIUM [Suspect]
     Active Substance: ENOXAPARIN SODIUM
     Indication: In vitro fertilisation
     Dosage: 30 MG, QD
     Route: 058

REACTIONS (3)
  - Injection site mass [Not Recovered/Not Resolved]
  - Product use in unapproved indication [Unknown]
  - Wrong technique in product usage process [Unknown]
